FAERS Safety Report 6254400-8 (Version None)
Quarter: 2009Q3

REPORT INFORMATION
  Report Type: 
  Country: None (occurrence: None)
  Receive Date: 20090702
  Receipt Date: 20090625
  Transmission Date: 20100115
  Serious: Yes (Other)
  Sender: FDA-Public Use
  Company Number: GB-BIOGENIDEC-2009BI012101

PATIENT
  Sex: Female

DRUGS (4)
  1. TYSABRI [Suspect]
     Indication: DRUG USE FOR UNKNOWN INDICATION
     Route: 042
  2. VENLAFAXINE HYDROCHLORIDE [Concomitant]
     Indication: DEPRESSION
     Dates: start: 20080101
  3. CONTRACEPTIVE [Concomitant]
     Indication: CONTRACEPTION
  4. VESICARE [Concomitant]
     Indication: URINARY TRACT DISORDER

REACTIONS (2)
  - INFECTION [None]
  - LYMPHOCYTOSIS [None]
